FAERS Safety Report 9969685 (Version 1)
Quarter: 2014Q1

REPORT INFORMATION
  Report Type: Spontaneous
  Country: US (occurrence: None)
  Receive Date: 20140304
  Receipt Date: 20140304
  Transmission Date: 20141002
  Serious: Yes (Hospitalization)
  Sender: FDA-Public Use
  Company Number: SYM-2014-17995

PATIENT
  Sex: Female

DRUGS (2)
  1. XENAZINE (TETRABENAZINE) (TABLET) (TETRABENAZINE) [Suspect]
     Indication: TARDIVE DYSKINESIA
     Dosage: 3 IN 1 D
     Route: 048
     Dates: start: 20100402
  2. XENAZINE (TETRABENAZINE) (TABLET) (TETRABENAZINE) [Suspect]
     Indication: OFF LABEL USE
     Dosage: 3 IN 1 D
     Route: 048
     Dates: start: 20100402

REACTIONS (1)
  - Abdominal operation [None]
